FAERS Safety Report 4984536-0 (Version None)
Quarter: 2006Q2

REPORT INFORMATION
  Report Type: 
  Country: None (occurrence: None)
  Receive Date: 20060421
  Receipt Date: 20060406
  Transmission Date: 20061013
  Serious: Yes (Hospitalization)
  Sender: FDA-Public Use
  Company Number: 220001M06DEU

PATIENT
  Age: 6 Year
  Sex: Male
  Weight: 20 kg

DRUGS (1)
  1. SAIZEN [Suspect]
     Indication: GROWTH HORMONE DEFICIENCY
     Dosage: 0.6, 1 IN 1 DAYS, SUBCUTANEOUS
     Route: 058
     Dates: start: 20041005, end: 20051004

REACTIONS (1)
  - MEDULLOBLASTOMA [None]
